FAERS Safety Report 6097693-2 (Version None)
Quarter: 2009Q1

REPORT INFORMATION
  Report Type: 
  Country: None (occurrence: None)
  Receive Date: 20090227
  Receipt Date: 20090217
  Transmission Date: 20090719
  Serious: Yes (Life-Threatening, Hospitalization)
  Sender: FDA-Public Use
  Company Number: GB-ROCHE-615367

PATIENT
  Age: 37 Year
  Sex: Female

DRUGS (1)
  1. CEFTRIAXONE [Suspect]
     Indication: CHORIOAMNIONITIS
     Dosage: DRUG WITHDRAWN
     Route: 042

REACTIONS (2)
  - ANAPHYLACTIC REACTION [None]
  - PREMATURE SEPARATION OF PLACENTA [None]
